FAERS Safety Report 13578694 (Version 3)
Quarter: 2017Q2

REPORT INFORMATION
  Report Type: Spontaneous
  Country: BR (occurrence: BR)
  Receive Date: 20170524
  Receipt Date: 20170606
  Transmission Date: 20170830
  Serious: No
  Sender: FDA-Public Use
  Company Number: BR-009507513-1705BRA008034

PATIENT
  Age: 78 Year
  Sex: Male
  Weight: 75 kg

DRUGS (1)
  1. JANUMET XR [Suspect]
     Active Substance: METFORMIN HYDROCHLORIDE\SITAGLIPTIN PHOSPHATE
     Indication: DIABETES MELLITUS
     Dosage: TWICE A DAY: ONE (50/1000MG) TABLET IN THE MORNING. ONE (50/1000MG) TABLET AT NIGHT
     Route: 048
     Dates: start: 2015

REACTIONS (4)
  - Poor quality drug administered [Unknown]
  - Product use issue [Unknown]
  - Blood glucose fluctuation [Unknown]
  - Product quality issue [Unknown]

NARRATIVE: CASE EVENT DATE: 2015
